FAERS Safety Report 21530434 (Version 1)
Quarter: 2022Q4

REPORT INFORMATION
  Report Type: Spontaneous
  Country: US (occurrence: None)
  Receive Date: 20221028
  Receipt Date: 20221028
  Transmission Date: 20230113
  Serious: Yes (Hospitalization)
  Sender: FDA-Public Use
  Company Number: None

PATIENT

DRUGS (1)
  1. APIXABAN [Suspect]
     Active Substance: APIXABAN

REACTIONS (6)
  - Abdominal pain [None]
  - Melaena [None]
  - Vomiting [None]
  - Haemoglobin decreased [None]
  - Haematocrit decreased [None]
  - International normalised ratio increased [None]

NARRATIVE: CASE EVENT DATE: 20210521
